FAERS Safety Report 9063654 (Version 2)
Quarter: 2013Q1

REPORT INFORMATION
  Report Type: Spontaneous
  Country: PT (occurrence: PT)
  Receive Date: 20130213
  Receipt Date: 20130311
  Transmission Date: 20140127
  Serious: Yes (Death)
  Sender: FDA-Public Use
  Company Number: PT-GENZYME-CAMP-1002607

PATIENT
  Age: 67 None
  Sex: Male

DRUGS (4)
  1. CAMPATH [Suspect]
     Indication: NON-HODGKIN^S LYMPHOMA
     Dosage: 10 MG, 3X/W
     Route: 058
     Dates: start: 20121212, end: 20121226
  2. OMEPRAZOLE [Concomitant]
     Indication: PRODUCT USED FOR UNKNOWN INDICATION
     Dosage: 20 MG, UNK
     Route: 065
  3. FOLIC ACID [Concomitant]
     Indication: PRODUCT USED FOR UNKNOWN INDICATION
     Dosage: 5 MG, UNK
     Route: 065
  4. PREDNISONE [Concomitant]
     Indication: PRODUCT USED FOR UNKNOWN INDICATION
     Dosage: 10 MG, UNK
     Route: 065
     Dates: end: 20121205

REACTIONS (2)
  - Meningitis cryptococcal [Fatal]
  - Off label use [Unknown]
